FAERS Safety Report 7153443 (Version 2)
Quarter: 2013Q4

REPORT INFORMATION
  Report Type: Spontaneous
  Country: US (occurrence: None)
  Receive Date: 20091006
  Receipt Date: 20131212
  Transmission Date: 20140711
  Serious: Yes (Other)
  Sender: FDA-Public Use
  Company Number: 20090425

PATIENT
  Age: 32 Year
  Sex: Male

DRUGS (1)
  1. VASOPRESSIN [Suspect]
     Indication: HYPOTENSION
     Dosage: 0.08 U/MIN INTRAVENOUS
     Route: 042

REACTIONS (2)
  - Diabetes insipidus [None]
  - Hypernatraemia [None]
